FAERS Safety Report 4751234-8 (Version None)
Quarter: 2005Q3

REPORT INFORMATION
  Report Type: 
  Country: None (occurrence: None)
  Receive Date: 20050822
  Receipt Date: 20050805
  Transmission Date: 20060218
  Serious: Yes (Hospitalization, Disabling)
  Sender: FDA-Public Use
  Company Number: 394224

PATIENT
  Age: 16 Year
  Sex: Male
  Weight: 84.8 kg

DRUGS (2)
  1. ACCUTANE [Suspect]
     Indication: ACNE
     Dosage: 40 MG DAILY ORAL
     Route: 048
     Dates: start: 19990603, end: 20000129
  2. ZITHROMAX [Concomitant]

REACTIONS (27)
  - ANAEMIA [None]
  - ANXIETY [None]
  - COLITIS [None]
  - COLITIS ULCERATIVE [None]
  - CONDITION AGGRAVATED [None]
  - CONSTIPATION [None]
  - DEPRESSION [None]
  - DRY SKIN [None]
  - GASTROENTERITIS HELICOBACTER [None]
  - GASTROINTESTINAL PERFORATION [None]
  - GASTROOESOPHAGEAL REFLUX DISEASE [None]
  - GENERAL PHYSICAL CONDITION ABNORMAL [None]
  - GENERALISED ANXIETY DISORDER [None]
  - HAEMORRHOIDS [None]
  - INFLAMMATORY BOWEL DISEASE [None]
  - INJURY [None]
  - INTESTINAL HAEMORRHAGE [None]
  - INTESTINAL OBSTRUCTION [None]
  - IRRITABLE BOWEL SYNDROME [None]
  - MENTAL DISORDER [None]
  - PITYRIASIS ALBA [None]
  - PROCTITIS [None]
  - RASH PAPULAR [None]
  - RECTAL HAEMORRHAGE [None]
  - SOMNOLENCE [None]
  - STRESS [None]
  - ULCER [None]
